FAERS Safety Report 21731139 (Version 1)
Quarter: 2022Q4

REPORT INFORMATION
  Report Type: Other
  Country: JP (occurrence: None)
  Receive Date: 20221215
  Receipt Date: 20221215
  Transmission Date: 20230113
  Serious: Yes (Hospitalization, Other)
  Sender: FDA-Public Use
  Company Number: JP-Square-000112

PATIENT
  Age: 65 Year
  Sex: Male

DRUGS (6)
  1. ACYCLOVIR [Suspect]
     Active Substance: ACYCLOVIR
     Indication: Ophthalmic herpes zoster
     Dosage: 375 MG (5MG/KG) 3 TIMES PER DAY
  2. AMENAMEVIR [Concomitant]
     Active Substance: AMENAMEVIR
     Indication: Ophthalmic herpes zoster
  3. PRANOPROFEN [Concomitant]
     Active Substance: PRANOPROFEN
     Indication: Inflammation
  4. PREDNISOLONE [Concomitant]
     Active Substance: PREDNISOLONE
     Indication: Ophthalmic herpes zoster
     Dosage: 40 MG
  5. ACYCLOVIR [Suspect]
     Active Substance: ACYCLOVIR
     Indication: Inflammation
  6. PREDNISOLONE [Concomitant]
     Active Substance: PREDNISOLONE
     Indication: Ophthalmic herpes zoster
     Dosage: 30 MG/DAY FOR 3 DAYS

REACTIONS (4)
  - Optic ischaemic neuropathy [Unknown]
  - Optic neuritis [Unknown]
  - Herpes zoster [Unknown]
  - Therapy partial responder [Unknown]
